FAERS Safety Report 7894764 (Version 6)
Quarter: 2014Q4

REPORT INFORMATION
  Report Type: Spontaneous
  Country: US (occurrence: US)
  Receive Date: 20110412
  Receipt Date: 20141226
  Transmission Date: 20150529
  Serious: Yes (Life-Threatening, Hospitalization)
  Sender: FDA-Public Use
  Company Number: US-BAYER-2011-030921

PATIENT
  Age: 48 Year
  Sex: Female
  Weight: 77 kg

DRUGS (17)
  1. SIMVASTATIN. [Concomitant]
     Active Substance: SIMVASTATIN
     Indication: HYPERLIPIDAEMIA
  2. ZOFRAN [Concomitant]
     Active Substance: ONDANSETRON HYDROCHLORIDE
  3. YASMIN [Suspect]
     Active Substance: DROSPIRENONE\ETHINYL ESTRADIOL
     Indication: CONTRACEPTION
     Dosage: UNK
     Route: 048
     Dates: start: 2003, end: 2008
  4. PROTONIX [Concomitant]
     Active Substance: PANTOPRAZOLE SODIUM
  5. COLACE [Concomitant]
     Active Substance: DOCUSATE SODIUM
  6. TYLENOL [DIPHENHYDRAMINE HYDROCHLORIDE,PARACETAMOL] [Concomitant]
  7. ATIVAN [Concomitant]
     Active Substance: LORAZEPAM
  8. MALARONE [Concomitant]
     Active Substance: ATOVAQUONE\PROGUANIL HYDROCHLORIDE
  9. CIPROFLOXACIN. [Concomitant]
     Active Substance: CIPROFLOXACIN
     Dosage: UNK
     Route: 048
     Dates: start: 20090925
  10. AMBIEN [Concomitant]
     Active Substance: ZOLPIDEM TARTRATE
  11. OCELLA [Suspect]
     Active Substance: DROSPIRENONE\ETHINYL ESTRADIOL
     Indication: CONTRACEPTION
     Dosage: UNK
     Route: 048
     Dates: start: 2008, end: 2009
  12. ACYCLOVIR [ACICLOVIR] [Concomitant]
     Active Substance: ACYCLOVIR
     Dosage: UNK
     Dates: start: 2003, end: 2009
  13. ASPIRIN. [Concomitant]
     Active Substance: ASPIRIN
  14. ZOCOR [Concomitant]
     Active Substance: SIMVASTATIN
  15. DULCOLAX [Concomitant]
     Active Substance: BISACODYL OR DOCUSATE SODIUM
  16. VIVOTIF BERNA [Concomitant]
     Dosage: UNK
     Route: 048
     Dates: start: 20090925
  17. MILK OF MAGNESIA [Concomitant]
     Active Substance: MAGNESIUM HYDROXIDE

REACTIONS (12)
  - General physical health deterioration [None]
  - Anxiety [None]
  - Pain [None]
  - Cerebrovascular accident [None]
  - Speech disorder [None]
  - Amnesia [None]
  - Injury [None]
  - Dysgraphia [None]
  - Hemiparesis [None]
  - Facial asymmetry [None]
  - Anhedonia [None]
  - Aphasia [None]

NARRATIVE: CASE EVENT DATE: 20091009
